FAERS Safety Report 7367612-7 (Version None)
Quarter: 2011Q1

REPORT INFORMATION
  Report Type: 
  Country: None (occurrence: None)
  Receive Date: 20110314
  Receipt Date: 20110303
  Transmission Date: 20110831
  Serious: Yes (Hospitalization)
  Sender: FDA-Public Use
  Company Number: DSA_45142_2011

PATIENT
  Sex: Female

DRUGS (6)
  1. VOXRA (VOXRA - BUPROPION HYDROCHLORIDE EXTENDED RELEASE)(NOT SPECIFIED [Suspect]
     Indication: PRODUCT USED FOR UNKNOWN INDICATION
     Dosage: (DF ORAL)
     Route: 048
     Dates: start: 20110121, end: 20110124
  2. LEVOTHYROXINE SODIUM [Concomitant]
  3. ALVEDON [Concomitant]
  4. LAMOTRIGINE [Concomitant]
  5. AERIUS /01398501/ [Concomitant]
  6. ATARAX [Concomitant]

REACTIONS (8)
  - PHARYNGEAL OEDEMA [None]
  - SWOLLEN TONGUE [None]
  - ERYTHEMA [None]
  - URTICARIA [None]
  - OEDEMA MOUTH [None]
  - LIP SWELLING [None]
  - PRURITUS [None]
  - ANGIOEDEMA [None]
